FAERS Safety Report 20670933 (Version 1)
Quarter: 2022Q2

REPORT INFORMATION
  Report Type: Spontaneous
  Country: US (occurrence: US)
  Receive Date: 20220404
  Receipt Date: 20220404
  Transmission Date: 20220720
  Serious: No
  Sender: FDA-Public Use
  Company Number: US-BAUSCH-BL-2022-007973

PATIENT
  Age: 67 Year
  Sex: Female
  Weight: 93.524 kg

DRUGS (3)
  1. RELISTOR [Suspect]
     Active Substance: METHYLNALTREXONE BROMIDE
     Indication: Constipation
     Route: 048
     Dates: start: 202203, end: 202203
  2. RELISTOR [Suspect]
     Active Substance: METHYLNALTREXONE BROMIDE
     Route: 048
     Dates: start: 202203, end: 202203
  3. RELISTOR [Suspect]
     Active Substance: METHYLNALTREXONE BROMIDE
     Route: 048
     Dates: start: 20220327

REACTIONS (3)
  - Urinary tract infection [Unknown]
  - Abdominal pain upper [Not Recovered/Not Resolved]
  - Abdominal discomfort [Not Recovered/Not Resolved]

NARRATIVE: CASE EVENT DATE: 20220301
